FAERS Safety Report 8114106-7 (Version None)
Quarter: 2012Q1

REPORT INFORMATION
  Report Type: 
  Country: None (occurrence: None)
  Receive Date: 20120203
  Receipt Date: 20120125
  Transmission Date: 20120608
  Serious: Yes (Hospitalization)
  Sender: FDA-Public Use
  Company Number: US-ASTRAZENECA-2011SE75076

PATIENT
  Age: 71 Year
  Sex: Female

DRUGS (2)
  1. SYMBICORT [Suspect]
     Indication: CHRONIC OBSTRUCTIVE PULMONARY DISEASE
     Dosage: 2 PUFFS TWICE DAILY
     Route: 055
     Dates: start: 20111101
  2. BLOOD THINNER MEDICATION [Concomitant]

REACTIONS (4)
  - UPPER RESPIRATORY TRACT INFECTION [None]
  - MALAISE [None]
  - DRUG DOSE OMISSION [None]
  - DYSPNOEA EXERTIONAL [None]
